FAERS Safety Report 5308305-7 (Version None)
Quarter: 2007Q2

REPORT INFORMATION
  Report Type: 
  Country: None (occurrence: None)
  Receive Date: 20070423
  Receipt Date: 20070406
  Transmission Date: 20071010
  Serious: Yes (Hospitalization, Disabling)
  Sender: FDA-Public Use
  Company Number: US019855

PATIENT
  Sex: Female

DRUGS (1)
  1. ACTIQ [Suspect]
     Indication: PAIN
     Dosage: 1600 UG  BUCCAL
     Route: 002

REACTIONS (6)
  - IMPAIRED WORK ABILITY [None]
  - MASTICATION DISORDER [None]
  - SPEECH DISORDER [None]
  - TOOTH FRACTURE [None]
  - TOOTH LOSS [None]
  - WEIGHT DECREASED [None]
